FAERS Safety Report 11243106 (Version 1)
Quarter: 2015Q3

REPORT INFORMATION
  Report Type: Report from Study
  Country: CH (occurrence: CH)
  Receive Date: 20150707
  Receipt Date: 20150707
  Transmission Date: 20151125
  Serious: Yes (Other)
  Sender: FDA-Public Use
  Company Number: CH-BIOGENIDEC-2015BI080202

PATIENT
  Age: 45 Year
  Sex: Female

DRUGS (1)
  1. AVONEX [Suspect]
     Active Substance: INTERFERON BETA-1A
     Indication: MULTIPLE SCLEROSIS
     Route: 030
     Dates: start: 20050824

REACTIONS (4)
  - VIIth nerve paralysis [Recovered/Resolved]
  - Diplegia [Recovered/Resolved]
  - Cerebrovascular accident [Recovered/Resolved]
  - General symptom [Recovered/Resolved]

NARRATIVE: CASE EVENT DATE: 201505
